FAERS Safety Report 8430001-8 (Version None)
Quarter: 2012Q2

REPORT INFORMATION
  Report Type: 
  Country: None (occurrence: None)
  Receive Date: 20120323
  Receipt Date: 20110825
  Transmission Date: 20120825
  Serious: Yes (Hospitalization)
  Sender: FDA-Public Use
  Company Number: 163-21880-11083096

PATIENT
  Age: 84 Year
  Sex: Female

DRUGS (2)
  1. REVLIMID [Suspect]
     Indication: MULTIPLE MYELOMA
     Dosage: 5 MG, 3 WEEKS ON/1 WEEK OFF, PO, 3 WEEKS ON/1 WEEK OFF, PO
     Route: 048
     Dates: start: 20110815
  2. REVLIMID [Suspect]
     Indication: MULTIPLE MYELOMA
     Dosage: 5 MG, 3 WEEKS ON/1 WEEK OFF, PO, 3 WEEKS ON/1 WEEK OFF, PO
     Route: 048
     Dates: start: 20100830, end: 20110602

REACTIONS (1)
  - ABDOMINAL ABSCESS [None]
